FAERS Safety Report 24861703 (Version 1)
Quarter: 2025Q1

REPORT INFORMATION
  Report Type: Spontaneous
  Country: GB (occurrence: GB)
  Receive Date: 20250120
  Receipt Date: 20250120
  Transmission Date: 20250408
  Serious: Yes (Hospitalization, Other)
  Sender: MICRO LABS
  Company Number: None

PATIENT
  Age: 52 Year
  Sex: Female

DRUGS (1)
  1. ATORVASTATIN [Suspect]
     Active Substance: ATORVASTATIN
     Indication: Hypercholesterolaemia
     Dosage: 20 MG ONCE AT NIGHT
     Dates: start: 20250103, end: 20250110

REACTIONS (2)
  - Jaundice [Unknown]
  - Medication error [Unknown]

NARRATIVE: CASE EVENT DATE: 20250106
